FAERS Safety Report 16488701 (Version 1)
Quarter: 2019Q2

REPORT INFORMATION
  Report Type: Spontaneous
  Country: DE (occurrence: DE)
  Receive Date: 20190627
  Receipt Date: 20190627
  Transmission Date: 20190711
  Serious: Yes (Death, Life-Threatening, Other)
  Sender: FDA-Public Use
  Company Number: DE-AMGEN-DEUSP2019100428

PATIENT

DRUGS (3)
  1. XGEVA [Suspect]
     Active Substance: DENOSUMAB
     Indication: METASTASES TO BONE
     Dosage: UNK
     Route: 065
  2. IPILIMUMAB [Concomitant]
     Active Substance: IPILIMUMAB
     Dosage: UNK
  3. NIVOLUMAB [Concomitant]
     Active Substance: NIVOLUMAB
     Dosage: UNK

REACTIONS (21)
  - Fatigue [Unknown]
  - Back pain [Unknown]
  - Nausea [Unknown]
  - Lipase increased [Unknown]
  - Amylase increased [Unknown]
  - Myalgia [Unknown]
  - Decreased appetite [Unknown]
  - Hepatitis [Unknown]
  - Neoplasm progression [Fatal]
  - Pyrexia [Unknown]
  - Rash [Unknown]
  - Dyspnoea [Unknown]
  - Hypocalcaemia [Unknown]
  - Alanine aminotransferase increased [Unknown]
  - Myasthenic syndrome [Unknown]
  - Hypothyroidism [Unknown]
  - Pruritus [Unknown]
  - Vitiligo [Unknown]
  - Arthralgia [Unknown]
  - Aspartate aminotransferase increased [Unknown]
  - Colitis [Unknown]
